FAERS Safety Report 21172101 (Version 8)
Quarter: 2022Q3

REPORT INFORMATION
  Report Type: Report from Study
  Country: US (occurrence: US)
  Receive Date: 20220804
  Receipt Date: 20220908
  Transmission Date: 20221026
  Serious: Yes (Death, Hospitalization)
  Sender: FDA-Public Use
  Company Number: US-NOVARTISPH-NVSC2021US135069

PATIENT
  Age: 73 Year
  Sex: Female
  Weight: 14.7 kg

DRUGS (91)
  1. DIOVAN [Suspect]
     Active Substance: VALSARTAN
     Indication: Cardiac failure acute
     Dosage: UNK
     Route: 048
     Dates: start: 20210407
  2. HUMALOG [Suspect]
     Active Substance: INSULIN LISPRO
     Indication: Type 2 diabetes mellitus
     Dosage: UNK
     Route: 065
     Dates: start: 20210615, end: 20210617
  3. HUMALOG [Suspect]
     Active Substance: INSULIN LISPRO
     Dosage: UNK
     Route: 065
     Dates: start: 20211025, end: 20211029
  4. HUMALOG [Suspect]
     Active Substance: INSULIN LISPRO
     Dosage: UNK
     Route: 065
     Dates: start: 20211105, end: 20211107
  5. HUMALOG [Suspect]
     Active Substance: INSULIN LISPRO
     Dosage: UNK
     Route: 065
     Dates: start: 20211117, end: 20211117
  6. HUMALOG [Suspect]
     Active Substance: INSULIN LISPRO
     Dosage: UNK
     Route: 065
     Dates: start: 20220106, end: 20220111
  7. HUMALOG [Suspect]
     Active Substance: INSULIN LISPRO
     Dosage: UNK
     Route: 065
     Dates: start: 20220605
  8. LOVENOX [Concomitant]
     Active Substance: ENOXAPARIN SODIUM
     Indication: Blood disorder prophylaxis
     Dosage: UNK
     Route: 065
     Dates: start: 20210613, end: 20210616
  9. LOVENOX [Concomitant]
     Active Substance: ENOXAPARIN SODIUM
     Indication: Acute myocardial infarction
     Dosage: UNK
     Route: 065
     Dates: start: 20220105, end: 20220111
  10. LOVENOX [Concomitant]
     Active Substance: ENOXAPARIN SODIUM
     Indication: Prophylaxis
     Dosage: UNK
     Route: 065
     Dates: start: 20220605, end: 20220607
  11. LOVENOX [Concomitant]
     Active Substance: ENOXAPARIN SODIUM
     Dosage: UNK
     Route: 065
     Dates: start: 20220607, end: 20220610
  12. LOVENOX [Concomitant]
     Active Substance: ENOXAPARIN SODIUM
     Dosage: UNK
     Route: 065
     Dates: start: 20211024, end: 20211024
  13. LOVENOX [Concomitant]
     Active Substance: ENOXAPARIN SODIUM
     Dosage: UNK
     Route: 065
     Dates: start: 20211114, end: 20211117
  14. LOVENOX [Concomitant]
     Active Substance: ENOXAPARIN SODIUM
     Dosage: UNK
     Route: 065
     Dates: start: 20220610
  15. PANTOPRAZOLE SODIUM [Concomitant]
     Active Substance: PANTOPRAZOLE SODIUM
     Indication: Gastrooesophageal reflux disease
     Dosage: UNK
     Route: 065
     Dates: start: 20210613, end: 20211026
  16. PANTOPRAZOLE SODIUM [Concomitant]
     Active Substance: PANTOPRAZOLE SODIUM
     Dosage: UNK
     Route: 065
     Dates: start: 20220225, end: 20220605
  17. METFORMIN [Concomitant]
     Active Substance: METFORMIN HYDROCHLORIDE
     Indication: Type 2 diabetes mellitus
     Dosage: UNK
     Route: 065
     Dates: start: 20180216, end: 20210905
  18. PLAVIX [Concomitant]
     Active Substance: CLOPIDOGREL BISULFATE
     Indication: Coronary artery disease
     Dosage: UNK
     Route: 065
     Dates: start: 20210206, end: 20220605
  19. PLAVIX [Concomitant]
     Active Substance: CLOPIDOGREL BISULFATE
     Dosage: UNK
     Route: 065
     Dates: start: 20220608
  20. LASIX [Concomitant]
     Active Substance: FUROSEMIDE
     Indication: Cardiac failure
     Dosage: UNK
     Route: 065
     Dates: start: 20211029, end: 20211105
  21. LASIX [Concomitant]
     Active Substance: FUROSEMIDE
     Dosage: UNK
     Route: 065
     Dates: start: 20211107, end: 20211114
  22. ALLOPURINOL [Concomitant]
     Active Substance: ALLOPURINOL
     Indication: Gout
     Dosage: UNK
     Route: 065
     Dates: start: 20210421, end: 20210707
  23. ALLOPURINOL [Concomitant]
     Active Substance: ALLOPURINOL
     Dosage: UNK
     Route: 065
     Dates: start: 20211029, end: 20220605
  24. POTASSIUM CHLORIDE [Concomitant]
     Active Substance: POTASSIUM CHLORIDE
     Indication: General physical condition
     Dosage: UNK
     Route: 065
     Dates: start: 20220225, end: 20220228
  25. POTASSIUM CHLORIDE [Concomitant]
     Active Substance: POTASSIUM CHLORIDE
     Dosage: UNK
     Route: 065
     Dates: start: 20220610, end: 20220611
  26. ASPIRIN [Concomitant]
     Active Substance: ASPIRIN
     Indication: Cardiac failure
     Dosage: UNK
     Route: 065
     Dates: start: 20180216, end: 20220608
  27. ASPIRIN [Concomitant]
     Active Substance: ASPIRIN
     Indication: Coronary artery disease
     Dosage: UNK
     Route: 065
     Dates: start: 20220605, end: 20220605
  28. ASPIRIN [Concomitant]
     Active Substance: ASPIRIN
     Indication: Back pain
  29. ZOFRAN [Concomitant]
     Active Substance: ONDANSETRON HYDROCHLORIDE
     Indication: Gastrooesophageal reflux disease
     Dosage: UNK
     Route: 065
     Dates: start: 20220605
  30. DUONEB [Concomitant]
     Active Substance: ALBUTEROL SULFATE\IPRATROPIUM BROMIDE
     Indication: Chronic obstructive pulmonary disease
     Dosage: UNK
     Route: 065
     Dates: start: 20220605
  31. LIDOCAINE [Concomitant]
     Active Substance: LIDOCAINE
     Indication: Gastrooesophageal reflux disease
     Dosage: UNK
     Route: 065
     Dates: start: 20220607, end: 20220607
  32. METOLAZONE [Concomitant]
     Active Substance: METOLAZONE
     Indication: Cardiac failure
     Dosage: UNK
     Route: 065
     Dates: start: 20210505, end: 20210613
  33. METOLAZONE [Concomitant]
     Active Substance: METOLAZONE
     Dosage: UNK
     Route: 065
     Dates: start: 20210617, end: 20210901
  34. METOLAZONE [Concomitant]
     Active Substance: METOLAZONE
     Dosage: UNK
     Route: 065
     Dates: start: 20211024, end: 20211024
  35. METOLAZONE [Concomitant]
     Active Substance: METOLAZONE
     Dosage: UNK
     Route: 065
     Dates: start: 20220609, end: 20220610
  36. METOLAZONE [Concomitant]
     Active Substance: METOLAZONE
     Dosage: UNK
     Route: 065
     Dates: start: 20220610, end: 20220610
  37. ISOSORBIDE [Concomitant]
     Active Substance: ISOSORBIDE
     Indication: Coronary artery disease
     Dosage: UNK
     Route: 065
     Dates: start: 20220608
  38. ISOSORBIDE [Concomitant]
     Active Substance: ISOSORBIDE
     Indication: Chest pain
     Dosage: UNK
     Route: 065
     Dates: start: 20211118, end: 20220605
  39. ISOSORBIDE [Concomitant]
     Active Substance: ISOSORBIDE
     Dosage: UNK
     Route: 065
     Dates: start: 20220609
  40. SODIUM BICARBONATE [Concomitant]
     Active Substance: SODIUM BICARBONATE
     Indication: Gastrooesophageal reflux disease
     Dosage: UNK
     Route: 065
  41. NOREPINEPHRINE [Concomitant]
     Active Substance: NOREPINEPHRINE
     Indication: Hypotension
     Dosage: UNK
     Route: 065
     Dates: start: 20220105, end: 20220105
  42. NOREPINEPHRINE [Concomitant]
     Active Substance: NOREPINEPHRINE
     Indication: Cardio-respiratory arrest
  43. AMOXICILLIN [Concomitant]
     Active Substance: AMOXICILLIN
     Indication: Sinusitis
     Dosage: UNK
     Route: 065
     Dates: start: 20210616, end: 20210623
  44. AMOXICILLIN [Concomitant]
     Active Substance: AMOXICILLIN
     Indication: Nasopharyngitis
     Dosage: UNK
     Route: 065
     Dates: start: 20220405, end: 20220425
  45. MAALOX ANTACID [Concomitant]
     Active Substance: ALUMINUM HYDROXIDE\DIMETHICONE\MAGNESIUM HYDROXIDE
     Indication: General physical condition
     Dosage: UNK
     Route: 065
     Dates: start: 20220105, end: 20220105
  46. LORATADINE [Concomitant]
     Active Substance: LORATADINE
     Indication: Sinusitis
     Dosage: UNK
     Route: 065
     Dates: start: 20210616, end: 20210707
  47. LORATADINE [Concomitant]
     Active Substance: LORATADINE
     Indication: Nasopharyngitis
     Dosage: UNK
     Route: 065
     Dates: start: 20220405, end: 20220605
  48. LORATADINE [Concomitant]
     Active Substance: LORATADINE
     Indication: Sinusitis
  49. TRAMADOL [Concomitant]
     Active Substance: TRAMADOL
     Indication: Back pain
     Dosage: UNK
     Route: 065
     Dates: start: 20210616, end: 20210616
  50. NPH INSULIN [Concomitant]
     Active Substance: INSULIN BEEF
     Indication: Type 2 diabetes mellitus
     Dosage: UNK
     Route: 065
     Dates: start: 20210615, end: 20210617
  51. NPH INSULIN [Concomitant]
     Active Substance: INSULIN BEEF
     Dosage: UNK
     Route: 065
     Dates: start: 20210903, end: 20210905
  52. FLONASE [Concomitant]
     Active Substance: FLUTICASONE PROPIONATE
     Indication: Seasonal allergy
     Dosage: UNK
     Route: 065
     Dates: start: 20210614, end: 20220605
  53. FLONASE [Concomitant]
     Active Substance: FLUTICASONE PROPIONATE
     Dosage: UNK
     Route: 065
     Dates: start: 20220606
  54. GABAPENTIN [Concomitant]
     Active Substance: GABAPENTIN
     Indication: Type 2 diabetes mellitus
     Dosage: UNK
     Route: 065
     Dates: start: 20210901, end: 20211029
  55. GABAPENTIN [Concomitant]
     Active Substance: GABAPENTIN
     Dosage: UNK
     Route: 065
     Dates: start: 20180302, end: 20210901
  56. GABAPENTIN [Concomitant]
     Active Substance: GABAPENTIN
     Dosage: UNK
     Route: 065
     Dates: start: 20211029, end: 20220227
  57. GABAPENTIN [Concomitant]
     Active Substance: GABAPENTIN
     Dosage: UNK
     Route: 065
     Dates: start: 20220304, end: 20220605
  58. RESTORIL [Concomitant]
     Active Substance: TEMAZEPAM
     Indication: General physical condition
     Dosage: UNK
     Route: 065
     Dates: start: 20210905, end: 20210905
  59. DILAUDID [Concomitant]
     Active Substance: HYDROMORPHONE HYDROCHLORIDE
     Indication: Back pain
     Dosage: UNK
     Route: 065
     Dates: start: 20210904, end: 20210904
  60. CARVEDILOL [Concomitant]
     Active Substance: CARVEDILOL
     Indication: Hypertension
     Dosage: UNK
     Route: 065
     Dates: start: 20210902, end: 20210905
  61. GLIPIZIDE [Concomitant]
     Active Substance: GLIPIZIDE
     Indication: Type 2 diabetes mellitus
     Dosage: UNK
     Route: 065
     Dates: start: 20210905, end: 20211024
  62. GLIPIZIDE [Concomitant]
     Active Substance: GLIPIZIDE
     Dosage: UNK
     Route: 065
     Dates: start: 20211029, end: 20211105
  63. GLIPIZIDE [Concomitant]
     Active Substance: GLIPIZIDE
     Dosage: UNK
     Route: 065
     Dates: start: 20211107, end: 20211114
  64. GLIPIZIDE [Concomitant]
     Active Substance: GLIPIZIDE
     Dosage: UNK
     Route: 065
     Dates: start: 20211118, end: 20220105
  65. GLIPIZIDE [Concomitant]
     Active Substance: GLIPIZIDE
     Dosage: UNK
     Route: 065
     Dates: start: 20220112, end: 20220224
  66. GLIPIZIDE [Concomitant]
     Active Substance: GLIPIZIDE
     Dosage: UNK
     Route: 065
     Dates: start: 20220304, end: 20220605
  67. ZYRTEC [Concomitant]
     Active Substance: CETIRIZINE HYDROCHLORIDE
     Indication: Seasonal allergy
     Dosage: UNK
     Route: 065
     Dates: start: 20210905, end: 20211024
  68. ZYRTEC [Concomitant]
     Active Substance: CETIRIZINE HYDROCHLORIDE
     Dosage: UNK
     Route: 065
     Dates: start: 20211029, end: 20220108
  69. ZYRTEC [Concomitant]
     Active Substance: CETIRIZINE HYDROCHLORIDE
     Dosage: UNK
     Route: 065
     Dates: start: 20220112, end: 20220605
  70. AMIODARONE [Concomitant]
     Active Substance: AMIODARONE
     Indication: Cardio-respiratory arrest
     Route: 065
  71. TYLENOL [Concomitant]
     Active Substance: ACETAMINOPHEN
     Indication: Back pain
     Dosage: UNK
     Route: 065
     Dates: start: 20220605
  72. CLARITIN [Concomitant]
     Active Substance: LORATADINE
     Indication: Seasonal allergy
     Dosage: UNK
     Route: 065
     Dates: start: 20211024, end: 20211029
  73. CLARITIN [Concomitant]
     Active Substance: LORATADINE
     Dosage: UNK
     Route: 065
     Dates: start: 20220108, end: 20220109
  74. PANTOPRAZOLE [Concomitant]
     Active Substance: PANTOPRAZOLE
     Indication: Gastrooesophageal reflux disease
     Dosage: UNK
     Route: 065
     Dates: start: 20210613, end: 20211026
  75. PANTOPRAZOLE [Concomitant]
     Active Substance: PANTOPRAZOLE
     Dosage: UNK
     Route: 065
     Dates: start: 20220225, end: 20220605
  76. PROTONIX [Concomitant]
     Active Substance: PANTOPRAZOLE SODIUM
     Indication: Peptic ulcer
     Dosage: UNK
     Route: 065
     Dates: start: 20211024, end: 20211027
  77. PROTONIX [Concomitant]
     Active Substance: PANTOPRAZOLE SODIUM
     Dosage: UNK
     Route: 065
     Dates: start: 20211026, end: 20211028
  78. PROTONIX [Concomitant]
     Active Substance: PANTOPRAZOLE SODIUM
     Dosage: UNK
     Route: 065
     Dates: start: 20211114, end: 20211118
  79. PROTONIX [Concomitant]
     Active Substance: PANTOPRAZOLE SODIUM
     Dosage: UNK
     Route: 065
     Dates: start: 20211028
  80. ALBUTEROL [Concomitant]
     Active Substance: ALBUTEROL
     Indication: General physical condition
     Dosage: UNK
     Route: 065
     Dates: start: 20211029, end: 20220304
  81. TRAZODONE [Concomitant]
     Active Substance: TRAZODONE HYDROCHLORIDE
     Indication: General physical condition
     Dosage: UNK
     Route: 065
     Dates: start: 20211115, end: 20220605
  82. TOPROL XL [Concomitant]
     Active Substance: METOPROLOL SUCCINATE
     Indication: Chest pain
     Dosage: UNK
     Route: 065
     Dates: start: 20211118, end: 20220107
  83. LEVOPHED [Concomitant]
     Active Substance: NOREPINEPHRINE BITARTRATE
     Indication: Hypotension
     Dosage: UNK
     Route: 065
     Dates: start: 20220104
  84. LEXAPRO [Concomitant]
     Active Substance: ESCITALOPRAM OXALATE
     Indication: Depression
     Dosage: UNK
     Route: 065
     Dates: start: 20220106, end: 20220111
  85. NITROGLYCERIN [Concomitant]
     Active Substance: NITROGLYCERIN
     Indication: Coronary artery disease
     Dosage: UNK
     Route: 065
     Dates: start: 20180302, end: 20220605
  86. HUMULIN NOS [Concomitant]
     Active Substance: INSULIN HUMAN
     Indication: Type 2 diabetes mellitus
     Dosage: UNK
     Route: 065
     Dates: start: 20220225, end: 20220304
  87. ZYRTEC [Concomitant]
     Active Substance: CETIRIZINE HYDROCHLORIDE
     Indication: Seasonal allergy
     Dosage: UNK
     Route: 065
     Dates: start: 20220112, end: 20220605
  88. ZYRTEC [Concomitant]
     Active Substance: CETIRIZINE HYDROCHLORIDE
     Dosage: UNK
     Route: 065
     Dates: start: 20210905, end: 20211024
  89. ZYRTEC [Concomitant]
     Active Substance: CETIRIZINE HYDROCHLORIDE
     Dosage: UNK
     Route: 065
     Dates: start: 20211029, end: 20220108
  90. HYDROCODONE [Concomitant]
     Active Substance: HYDROCODONE
     Indication: Back pain
     Dosage: UNK
     Route: 065
     Dates: start: 20220301, end: 20220304
  91. HYDROCODONE [Concomitant]
     Active Substance: HYDROCODONE
     Dosage: UNK
     Route: 065
     Dates: start: 20220605, end: 20220608

REACTIONS (15)
  - Cardiac failure congestive [Recovered/Resolved]
  - Cardiac failure congestive [Recovered/Resolved]
  - Cardiac failure congestive [Recovered/Resolved]
  - Acute left ventricular failure [Recovered/Resolved]
  - Acute left ventricular failure [Recovered/Resolved]
  - Renal failure [Recovered/Resolved]
  - Acute respiratory failure [Fatal]
  - Shock [Fatal]
  - Cardio-respiratory arrest [Fatal]
  - Cardiac failure congestive [Fatal]
  - Cardiac failure congestive [Recovered/Resolved]
  - Hypoglycaemia [Recovered/Resolved]
  - Bronchitis [Recovered/Resolved]
  - Chronic kidney disease [Recovered/Resolved]
  - Chronic kidney disease [Not Recovered/Not Resolved]

NARRATIVE: CASE EVENT DATE: 20210613
